FAERS Safety Report 17502936 (Version 1)
Quarter: 2020Q1

REPORT INFORMATION
  Report Type: Spontaneous
  Country: US (occurrence: US)
  Receive Date: 20200305
  Receipt Date: 20200305
  Transmission Date: 20200409
  Serious: No
  Sender: FDA-Public Use
  Company Number: US-ROCHE-2271457

PATIENT
  Sex: Female

DRUGS (5)
  1. PREDNISONE. [Concomitant]
     Active Substance: PREDNISONE
  2. SINGULAIR [Concomitant]
     Active Substance: MONTELUKAST SODIUM
     Route: 065
  3. ALLEGRA [Concomitant]
     Active Substance: FEXOFENADINE HYDROCHLORIDE
     Route: 065
  4. XOLAIR [Suspect]
     Active Substance: OMALIZUMAB
     Indication: PRODUCT USED FOR UNKNOWN INDICATION
     Dosage: STARTED ON XOLAIR 300 MG A WEEK AGO
     Route: 058
     Dates: start: 20190215
  5. RANITIDINE. [Concomitant]
     Active Substance: RANITIDINE
     Dosage: LAST INJECTION 15/FEB/2019
     Route: 065

REACTIONS (2)
  - Urticaria [Unknown]
  - Eye swelling [Unknown]
